FAERS Safety Report 6976384-7 (Version None)
Quarter: 2010Q3

REPORT INFORMATION
  Report Type: 
  Country: None (occurrence: None)
  Receive Date: 20100910
  Receipt Date: 20100831
  Transmission Date: 20110219
  Serious: Yes (Hospitalization, Congenital Anomaly, Other)
  Sender: FDA-Public Use
  Company Number: US-PFIZER INC-2010109632

PATIENT
  Sex: Male
  Weight: 0.907 kg

DRUGS (6)
  1. ZOLOFT [Suspect]
     Indication: DEPRESSION
     Dosage: 200 MG, UNK
     Route: 064
  2. ZOLOFT [Suspect]
     Indication: ANXIETY
     Dosage: 100 MG, UNK
     Route: 064
  3. CELESTONE [Concomitant]
     Route: 064
  4. AMPICILLIN [Concomitant]
     Route: 064
  5. MAGNESIUM [Concomitant]
     Route: 064
  6. MARIJUANA [Concomitant]
     Route: 064

REACTIONS (12)
  - ADRENOGENITAL SYNDROME [None]
  - ANAEMIA [None]
  - CONGENITAL HYPOTHYROIDISM [None]
  - DRUG EXPOSURE DURING PREGNANCY [None]
  - HYPERBILIRUBINAEMIA [None]
  - HYPOGLYCAEMIA [None]
  - INTRAVENTRICULAR HAEMORRHAGE NEONATAL [None]
  - LUNG DISORDER [None]
  - NEONATAL RESPIRATORY DISTRESS SYNDROME [None]
  - PATENT DUCTUS ARTERIOSUS [None]
  - SEPSIS [None]
  - THYROXINE DECREASED [None]
